FAERS Safety Report 10589088 (Version 2)
Quarter: 2014Q4

REPORT INFORMATION
  Report Type: Spontaneous
  Country: JP (occurrence: JP)
  Receive Date: 20141118
  Receipt Date: 20141118
  Transmission Date: 20150529
  Serious: Yes (Hospitalization)
  Sender: FDA-Public Use
  Company Number: JP-009507513-1411JPN000896

PATIENT
  Age: 79 Year
  Sex: Female

DRUGS (1)
  1. PREMINENT TABLETS [Suspect]
     Active Substance: HYDROCHLOROTHIAZIDE\LOSARTAN POTASSIUM
     Dosage: DAILY DOSE UNKNOWN
     Route: 048
     Dates: start: 2008

REACTIONS (2)
  - Cataract [Unknown]
  - Eyelid oedema [Unknown]
